FAERS Safety Report 7496009-4 (Version None)
Quarter: 2011Q2

REPORT INFORMATION
  Report Type: 
  Country: None (occurrence: None)
  Receive Date: 20110513
  Receipt Date: 20110429
  Transmission Date: 20111010
  Serious: No
  Sender: FDA-Public Use
  Company Number: HA11-093-AE

PATIENT
  Age: 21 Year
  Sex: Female
  Weight: 54.4316 kg

DRUGS (2)
  1. LO/OVAL (ETHINYL ESTADIOL AND NORGESTREL) [Concomitant]
  2. SULFAMETHOXAZOLE AND TRIMETHOPRIM [Suspect]
     Indication: STAPHYLOCOCCAL INFECTION
     Dosage: ORAL, 1 DOSE FORMS, 2 IN 12 HR.
     Route: 048

REACTIONS (9)
  - NEUTROPHIL COUNT DECREASED [None]
  - MONOCYTE COUNT DECREASED [None]
  - DYSPNOEA [None]
  - FATIGUE [None]
  - ASPARTATE AMINOTRANSFERASE INCREASED [None]
  - ALANINE AMINOTRANSFERASE INCREASED [None]
  - TACHYCARDIA [None]
  - BLOOD LACTATE DEHYDROGENASE INCREASED [None]
  - LYMPHOCYTE COUNT INCREASED [None]
